FAERS Safety Report 16072188 (Version 1)
Quarter: 2019Q1

REPORT INFORMATION
  Report Type: Spontaneous
  Country: US (occurrence: US)
  Receive Date: 20190314
  Receipt Date: 20190314
  Transmission Date: 20190418
  Serious: No
  Sender: FDA-Public Use
  Company Number: US-SA-2019SA069160

PATIENT
  Sex: Male

DRUGS (2)
  1. SOLIQUA 100/33 [Suspect]
     Active Substance: INSULIN GLARGINE\LIXISENATIDE
     Dosage: 60 U, QD EVERY MORNING
     Route: 065
  2. SOLOSTAR [Suspect]
     Active Substance: DEVICE
     Dosage: 60 U, QD,60 UNITS EVERY MORNING.
     Route: 065

REACTIONS (1)
  - Blood glucose increased [Unknown]
